FAERS Safety Report 24770975 (Version 1)
Quarter: 2024Q4

REPORT INFORMATION
  Report Type: Spontaneous
  Country: US (occurrence: None)
  Receive Date: 20241223
  Receipt Date: 20241223
  Transmission Date: 20250114
  Serious: Yes (Life-Threatening, Hospitalization)
  Sender: Public
  Company Number: None

PATIENT
  Age: 75 Year
  Sex: Male
  Weight: 103 kg

DRUGS (1)
  1. MULTIHANCE [Suspect]
     Active Substance: GADOBENATE DIMEGLUMINE
     Indication: Imaging procedure
     Dates: start: 20241218, end: 20241218

REACTIONS (6)
  - Agonal respiration [None]
  - Pharyngeal swelling [None]
  - Electrocardiogram ST segment elevation [None]
  - Troponin increased [None]
  - Cardiac arrest [None]
  - Anaphylactic reaction [None]

NARRATIVE: CASE EVENT DATE: 20241218
